FAERS Safety Report 15349790 (Version 1)
Quarter: 2018Q3

REPORT INFORMATION
  Report Type: Spontaneous
  Country: CN (occurrence: CN)
  Receive Date: 20180904
  Receipt Date: 20180904
  Transmission Date: 20181010
  Serious: Yes (Other)
  Sender: FDA-Public Use
  Company Number: CN-GILEAD-2018-0357119

PATIENT
  Sex: Male

DRUGS (7)
  1. ADEFOVIR DIPIVOXIL. [Suspect]
     Active Substance: ADEFOVIR DIPIVOXIL
     Indication: HEPATIC CIRRHOSIS
  2. HEPTODIN [Suspect]
     Active Substance: LAMIVUDINE
     Dosage: 100 MG, QD
     Route: 048
     Dates: start: 2013, end: 2017
  3. HEPTODIN [Suspect]
     Active Substance: LAMIVUDINE
     Indication: HEPATITIS B
     Dosage: 100 MG, QD
     Route: 048
     Dates: start: 2013, end: 2018
  4. ENTECAVIR. [Concomitant]
     Active Substance: ENTECAVIR
     Indication: PRODUCT USED FOR UNKNOWN INDICATION
     Dosage: UNK
     Route: 065
     Dates: start: 2017
  5. ADEFOVIR DIPIVOXIL. [Suspect]
     Active Substance: ADEFOVIR DIPIVOXIL
     Indication: HEPATITIS B
     Dosage: 1 DF, QD
     Route: 048
     Dates: start: 2017, end: 2018
  6. VIREAD [Suspect]
     Active Substance: TENOFOVIR DISOPROXIL FUMARATE
     Indication: HEPATIC CIRRHOSIS
  7. VIREAD [Suspect]
     Active Substance: TENOFOVIR DISOPROXIL FUMARATE
     Indication: HEPATITIS B
     Dosage: 300 MG, QD
     Route: 048
     Dates: start: 2018

REACTIONS (9)
  - Hepatic cirrhosis [Not Recovered/Not Resolved]
  - Drug ineffective [Unknown]
  - Viral load increased [Unknown]
  - Fall [Recovered/Resolved]
  - Therapy cessation [Unknown]
  - Product prescribing issue [Unknown]
  - Product use in unapproved indication [Unknown]
  - Product use issue [Unknown]
  - Intentional product misuse [Unknown]
